FAERS Safety Report 4764865-6 (Version None)
Quarter: 2005Q3

REPORT INFORMATION
  Report Type: 
  Country: None (occurrence: None)
  Receive Date: 20050906
  Receipt Date: 20050819
  Transmission Date: 20060218
  Serious: Yes (Other)
  Sender: FDA-Public Use
  Company Number: 199906330

PATIENT
  Age: 37 Year
  Sex: Female
  Weight: 50.8029 kg

DRUGS (1)
  1. BOTOX [Suspect]
     Indication: SKIN WRINKLING
     Dosage: 22 UNITS PRN IM
     Route: 030
     Dates: start: 19990716

REACTIONS (41)
  - ARTHRALGIA [None]
  - BRUXISM [None]
  - CHILLS [None]
  - DEPRESSION [None]
  - DROOLING [None]
  - DRUG INEFFECTIVE [None]
  - DRY EYE [None]
  - DYSARTHRIA [None]
  - DYSKINESIA [None]
  - DYSPHAGIA [None]
  - DYSPHASIA [None]
  - ERYTHEMA [None]
  - EXTRAOCULAR MUSCLE DISORDER [None]
  - EYE PAIN [None]
  - EYELID PTOSIS [None]
  - FACIAL NERVE DISORDER [None]
  - FACIAL PAIN [None]
  - FACIAL PALSY [None]
  - FACIAL PARESIS [None]
  - GINGIVAL DISORDER [None]
  - GINGIVAL SWELLING [None]
  - HEADACHE [None]
  - INJECTION SITE REACTION [None]
  - JOINT CREPITATION [None]
  - JOINT STIFFNESS [None]
  - LACRIMATION DECREASED [None]
  - MASTICATION DISORDER [None]
  - MUSCULOSKELETAL STIFFNESS [None]
  - MYOFASCIAL PAIN SYNDROME [None]
  - NECK PAIN [None]
  - NEUROPATHY [None]
  - PAIN [None]
  - PAIN IN JAW [None]
  - PARAESTHESIA [None]
  - SENSORY DISTURBANCE [None]
  - SINUSITIS [None]
  - SKIN SWELLING [None]
  - STRESS [None]
  - SWELLING [None]
  - TOOTH DISORDER [None]
  - VISUAL FIELD DEFECT [None]
